FAERS Safety Report 4588637-0 (Version None)
Quarter: 2005Q1

REPORT INFORMATION
  Report Type: 
  Country: None (occurrence: None)
  Receive Date: 20050218
  Receipt Date: 20050215
  Transmission Date: 20050727
  Serious: Yes (Death, Hospitalization)
  Sender: FDA-Public Use
  Company Number: 05-02-0215

PATIENT
  Age: 62 Year
  Sex: Male

DRUGS (1)
  1. CLOZAPINE [Suspect]
     Indication: SCHIZOPHRENIA, PARANOID TYPE
     Dosage: 400 MG QD ORAL
     Route: 048
     Dates: start: 20050101, end: 20050101

REACTIONS (2)
  - ANKLE FRACTURE [None]
  - POST PROCEDURAL COMPLICATION [None]
